FAERS Safety Report 8424805-5 (Version None)
Quarter: 2012Q2

REPORT INFORMATION
  Report Type: 
  Country: None (occurrence: None)
  Receive Date: 20120611
  Receipt Date: 20120605
  Transmission Date: 20120825
  Serious: No
  Sender: FDA-Public Use
  Company Number: US-BIOGENIDEC-2012BI020036

PATIENT
  Sex: Female

DRUGS (1)
  1. TYSABRI [Suspect]
     Indication: MULTIPLE SCLEROSIS
     Route: 042
     Dates: start: 20120504

REACTIONS (7)
  - PARAESTHESIA [None]
  - SINUS DISORDER [None]
  - NAUSEA [None]
  - VOMITING [None]
  - MIGRAINE [None]
  - HYPERHIDROSIS [None]
  - SENSORY DISTURBANCE [None]
